FAERS Safety Report 17322268 (Version 2)
Quarter: 2021Q2

REPORT INFORMATION
  Report Type: Spontaneous
  Country: JP (occurrence: JP)
  Receive Date: 20200127
  Receipt Date: 20210630
  Transmission Date: 20210716
  Serious: Yes (Death, Other)
  Sender: FDA-Public Use
  Company Number: JP-ROCHE-2530603

PATIENT
  Age: 74 Year
  Sex: Male
  Weight: 48 kg

DRUGS (4)
  1. UNASYN S [Concomitant]
     Active Substance: AMPICILLIN SODIUM\SULBACTAM SODIUM
     Dosage: DOSAGE IS UNCERTAIN.
     Route: 041
     Dates: start: 20191023, end: 20191031
  2. TECENTRIQ [Suspect]
     Active Substance: ATEZOLIZUMAB
     Indication: NON-SMALL CELL LUNG CANCER
     Dosage: 1200MG,ONCE IN3WEEK
     Route: 041
     Dates: start: 20191029, end: 20191029
  3. LANSOPRAZOLE. [Concomitant]
     Active Substance: LANSOPRAZOLE
     Dosage: DOSAGE IS UNCERTAIN.
     Route: 048
     Dates: start: 20190607, end: 20191113
  4. PREDNISOLONE. [Concomitant]
     Active Substance: PREDNISOLONE
     Dosage: DOSAGE IS UNCERTAIN.
     Route: 048
     Dates: start: 20190607, end: 20191113

REACTIONS (3)
  - Liver disorder [Not Recovered/Not Resolved]
  - Lower gastrointestinal haemorrhage [Fatal]
  - Pyrexia [Not Recovered/Not Resolved]

NARRATIVE: CASE EVENT DATE: 20191106
